FAERS Safety Report 19369543 (Version 1)
Quarter: 2021Q2

REPORT INFORMATION
  Report Type: Spontaneous
  Country: US (occurrence: US)
  Receive Date: 20210603
  Receipt Date: 20210603
  Transmission Date: 20210717
  Serious: No
  Sender: FDA-Public Use
  Company Number: US-NABRIVA THERAPEUTICS IRELAND DAC-US-2021NAB000008

PATIENT

DRUGS (1)
  1. XENLETA [Suspect]
     Active Substance: LEFAMULIN ACETATE
     Indication: PNEUMONIA PNEUMOCOCCAL
     Dosage: UNK
     Dates: start: 20210430

REACTIONS (2)
  - Diarrhoea [Recovered/Resolved]
  - Vomiting [Recovered/Resolved]

NARRATIVE: CASE EVENT DATE: 2021
